FAERS Safety Report 8202820 (Version 2)
Quarter: 2014Q2

REPORT INFORMATION
  Report Type: Spontaneous
  Country: US (occurrence: US)
  Receive Date: 20111027
  Receipt Date: 20140520
  Transmission Date: 20141212
  Serious: Yes (Death, Hospitalization)
  Sender: FDA-Public Use
  Company Number: US-JUTA GMBH-2011-16922

PATIENT
  Age: 40 Year
  Sex: Male

DRUGS (3)
  1. TOPIRAMATE (UNKNOWN) [Suspect]
     Indication: CONVULSION
     Dosage: UNKNOWN
     Route: 065
  2. DIVALPROEX [Concomitant]
     Indication: CONVULSION
     Dosage: UNK
     Route: 065
  3. METFORMIN W/ROSIGLITAZONE [Concomitant]
     Indication: DIABETES MELLITUS
     Dosage: UNK
     Route: 065

REACTIONS (1)
  - Heat stroke [Fatal]
